FAERS Safety Report 7952192-5 (Version None)
Quarter: 2011Q4

REPORT INFORMATION
  Report Type: 
  Country: None (occurrence: None)
  Receive Date: 20111201
  Receipt Date: 20111122
  Transmission Date: 20120403
  Serious: Yes (Hospitalization, Other)
  Sender: FDA-Public Use
  Company Number: PHHY2011BR93962

PATIENT
  Age: 72 Year
  Sex: Female

DRUGS (4)
  1. EXFORGE [Suspect]
     Indication: HYPERTENSION
     Dosage: 1 DF (160/5 MG) DAILY
  2. EXFORGE [Suspect]
     Indication: BLOOD PRESSURE
     Dosage: 1 DF (160/5MG) DAILY
  3. CLONAZEPAM [Concomitant]
     Indication: INSOMNIA
     Dosage: 2.5 ML, UNK
  4. ABLOK PLUS [Suspect]
     Indication: HYPERTENSION
     Dosage: 1 DF, QD

REACTIONS (3)
  - THROMBOSIS [None]
  - PAIN IN EXTREMITY [None]
  - BLOOD PRESSURE DIASTOLIC INCREASED [None]
